FAERS Safety Report 16172084 (Version 1)
Quarter: 2019Q2

REPORT INFORMATION
  Report Type: Spontaneous
  Country: FR (occurrence: FR)
  Receive Date: 20190409
  Receipt Date: 20190409
  Transmission Date: 20190711
  Serious: Yes (Hospitalization)
  Sender: FDA-Public Use
  Company Number: FR-TEVA-2019-FR-1033792

PATIENT
  Age: 38 Year
  Sex: Female
  Weight: 90 kg

DRUGS (9)
  1. LAMICTAL [Suspect]
     Active Substance: LAMOTRIGINE
     Dosage: 25 MILLIGRAM DAILY;
  2. VALPROATE DE SODIUM TEVA LP 500MG [Suspect]
     Active Substance: VALPROATE SODIUM
     Dosage: 250 MILLIGRAM DAILY;
  3. LAMICTAL [Suspect]
     Active Substance: LAMOTRIGINE
     Dosage: 50 MILLIGRAM DAILY;
  4. LAMICTAL [Suspect]
     Active Substance: LAMOTRIGINE
     Dosage: 100 MILLIGRAM DAILY;
  5. LAMICTAL [Suspect]
     Active Substance: LAMOTRIGINE
     Dosage: 75 MILLIGRAM DAILY;
  6. VALPROATE DE SODIUM TEVA LP 500MG [Suspect]
     Active Substance: VALPROATE SODIUM
     Dosage: 500 MG
  7. LAMICTAL [Suspect]
     Active Substance: LAMOTRIGINE
     Indication: EPILEPSY
     Dosage: 100 MILLIGRAM DAILY; 25 MG / DAY FOR 1 WEEK, 50 MG / DAY FOR 1 WEEK, 75 MG / DAY FOR 1 WEEK, 100 MG
     Route: 048
     Dates: start: 20181106, end: 20181207
  8. VALPROATE DE SODIUM TEVA LP 500MG [Suspect]
     Active Substance: VALPROATE SODIUM
     Indication: EPILEPSY
     Route: 048
     Dates: start: 2012
  9. VALPROATE DE SODIUM TEVA LP 500MG [Suspect]
     Active Substance: VALPROATE SODIUM
     Dosage: 1000 MILLIGRAM DAILY;

REACTIONS (2)
  - Headache [Recovered/Resolved]
  - Meningism [Recovered/Resolved]

NARRATIVE: CASE EVENT DATE: 201811
